FAERS Safety Report 6565508-1 (Version None)
Quarter: 2010Q1

REPORT INFORMATION
  Report Type: 
  Country: None (occurrence: None)
  Receive Date: 20100201
  Receipt Date: 20100125
  Transmission Date: 20100710
  Serious: Yes (Other)
  Sender: FDA-Public Use
  Company Number: US-JNJFOC-20070205179

PATIENT
  Sex: Female

DRUGS (2)
  1. RISPERDAL [Suspect]
     Indication: ANXIETY
     Route: 065
  2. RISPERDAL [Suspect]
     Indication: MAJOR DEPRESSION
     Route: 065

REACTIONS (3)
  - SPINAL OSTEOARTHRITIS [None]
  - TYPE 2 DIABETES MELLITUS [None]
  - WEIGHT INCREASED [None]
